FAERS Safety Report 9699076 (Version 1)
Quarter: 2013Q4

REPORT INFORMATION
  Report Type: Spontaneous
  Country: US (occurrence: None)
  Receive Date: 20131105
  Receipt Date: 20131105
  Transmission Date: 20140711
  Serious: Yes (Other)
  Sender: FDA-Public Use
  Company Number: 2013038655

PATIENT
  Age: 27 Year
  Sex: Male

DRUGS (2)
  1. IVIG [Suspect]
     Indication: IMMUNODEFICIENCY COMMON VARIABLE
  2. IVIG [Suspect]
     Indication: ACUTE DISSEMINATED ENCEPHALOMYELITIS

REACTIONS (3)
  - Off label use [None]
  - Respiratory failure [None]
  - Metachromatic leukodystrophy [None]
